FAERS Safety Report 14035235 (Version 1)
Quarter: 2017Q4

REPORT INFORMATION
  Report Type: Spontaneous
  Country: US (occurrence: US)
  Receive Date: 20171003
  Receipt Date: 20171003
  Transmission Date: 20180321
  Serious: Yes (Other)
  Sender: FDA-Public Use
  Company Number: US-PFIZER INC-2017422206

PATIENT
  Age: 55 Year
  Sex: Male
  Weight: 124.74 kg

DRUGS (11)
  1. LYRICA [Suspect]
     Active Substance: PREGABALIN
     Dosage: 50 MG, 2X/DAY (TOOK TWO DOSES OF 50MG)
     Dates: start: 20170924
  2. LYRICA [Suspect]
     Active Substance: PREGABALIN
     Dosage: 125 MG, DAILY(TOOK 50MG IN THE MORNING AND 75MG IN THE EVENING)
     Dates: start: 20170925
  3. LYRICA [Suspect]
     Active Substance: PREGABALIN
     Dosage: 175 MG, DAILY (50MG IN MORNING AND 125 MG IN THE EVENING)
     Dates: start: 20170927
  4. VALACYCLOVIR [Concomitant]
     Active Substance: VALACYCLOVIR HYDROCHLORIDE
     Dosage: UNK
     Dates: start: 20170922
  5. FENTANYL. [Concomitant]
     Active Substance: FENTANYL
     Indication: PAIN
     Dosage: 62 UG, PER HOUR TRANSDERMAL
     Route: 062
  6. LYRICA [Suspect]
     Active Substance: PREGABALIN
     Indication: POST HERPETIC NEURALGIA
     Dosage: 50 MG, 1X/DAY
     Dates: start: 20170923
  7. LYRICA [Suspect]
     Active Substance: PREGABALIN
     Dosage: 75 MG, 2X/DAY (TOOK 75MG IN THE MORNING AND 75MG IN THE EVENING)
     Dates: start: 20170926
  8. GRALISE [Concomitant]
     Active Substance: GABAPENTIN
     Indication: NEURALGIA
     Dosage: 600 MG, 2X/DAY
     Route: 048
     Dates: start: 2014
  9. VALACYCLOVIR [Concomitant]
     Active Substance: VALACYCLOVIR HYDROCHLORIDE
     Indication: HERPES ZOSTER
     Dosage: 800 MG, 3X/DAY
     Route: 048
     Dates: start: 201709
  10. LYRICA [Suspect]
     Active Substance: PREGABALIN
     Dosage: 150 MG, 2X/DAY
  11. FENTANYL. [Concomitant]
     Active Substance: FENTANYL
     Indication: COMPLICATIONS OF TRANSPLANT SURGERY

REACTIONS (3)
  - Suicidal ideation [Unknown]
  - Intentional product misuse [Unknown]
  - Pain [Not Recovered/Not Resolved]

NARRATIVE: CASE EVENT DATE: 20170924
